FAERS Safety Report 7987160-0 (Version None)
Quarter: 2011Q4

REPORT INFORMATION
  Report Type: 
  Country: None (occurrence: None)
  Receive Date: 20111216
  Receipt Date: 20111003
  Transmission Date: 20120403
  Serious: No
  Sender: FDA-Public Use
  Company Number: US-BRISTOL-MYERS SQUIBB COMPANY-16125569

PATIENT
  Age: 48 Year
  Sex: Female
  Weight: 59 kg

DRUGS (6)
  1. SEROQUEL [Concomitant]
  2. VENLAFAXINE HCL [Concomitant]
  3. KLONOPIN [Concomitant]
  4. ABILIFY [Suspect]
     Indication: DEPRESSION
     Route: 048
  5. ABILIFY [Suspect]
     Indication: ANXIETY
     Route: 048
  6. LAMOTRIGINE [Concomitant]

REACTIONS (1)
  - INSOMNIA [None]
